FAERS Safety Report 8059181-3 (Version None)
Quarter: 2012Q1

REPORT INFORMATION
  Report Type: 
  Country: None (occurrence: None)
  Receive Date: 20120113
  Receipt Date: 20120108
  Transmission Date: 20120608
  Serious: Yes (Hospitalization, Other)
  Sender: FDA-Public Use
  Company Number: ADR-2010-9518

PATIENT
  Age: 16 Year
  Sex: Male

DRUGS (1)
  1. LIORESAL [Suspect]
     Indication: MUSCLE SPASTICITY
     Dosage: MCG, DAILY, INTR
     Route: 037

REACTIONS (17)
  - INSOMNIA [None]
  - VOMITING [None]
  - INCISION SITE COMPLICATION [None]
  - WOUND DEHISCENCE [None]
  - NAUSEA [None]
  - DEVICE OCCLUSION [None]
  - DEVICE CONNECTION ISSUE [None]
  - MUSCLE SPASMS [None]
  - DRUG WITHDRAWAL SYNDROME [None]
  - TREMOR [None]
  - CENTRAL NERVOUS SYSTEM INFECTION [None]
  - DEVICE DAMAGE [None]
  - POSTOPERATIVE WOUND INFECTION [None]
  - PRURITUS [None]
  - HYPERTONIA [None]
  - CLONUS [None]
  - SECRETION DISCHARGE [None]
